FAERS Safety Report 23949864 (Version 4)
Quarter: 2024Q4

REPORT INFORMATION
  Report Type: Spontaneous
  Country: CA (occurrence: CA)
  Receive Date: 20240607
  Receipt Date: 20241210
  Transmission Date: 20250115
  Serious: Yes (Other)
  Sender: CELLTRION
  Company Number: CA-PFIZER INC-202400185086

PATIENT

DRUGS (5)
  1. INFLECTRA [Suspect]
     Active Substance: INFLIXIMAB-DYYB
     Indication: Crohn^s disease
     Dosage: 5 MG/KG, EVERY 8 WEEKS
     Route: 042
     Dates: start: 20240405
  2. INFLECTRA [Suspect]
     Active Substance: INFLIXIMAB-DYYB
     Dosage: 314 MG (5 MG/KG), EVERY 8 WEEKS
     Route: 042
     Dates: start: 20240531
  3. INFLECTRA [Suspect]
     Active Substance: INFLIXIMAB-DYYB
     Dosage: 315 MG (5 MG/KG), AFTER 8 WEEKS
     Route: 042
     Dates: start: 20240726
  4. INFLECTRA [Suspect]
     Active Substance: INFLIXIMAB-DYYB
     Dosage: 320 MG (5 MG/KG), AFTER 10 WEEKS (EVERY 8 WEEK)
     Route: 042
     Dates: start: 20241004
  5. INFLECTRA [Suspect]
     Active Substance: INFLIXIMAB-DYYB
     Dosage: 330 MG, 8 WEEKS (5 MG/KG, EVERY 8 WEEKS)
     Route: 042
     Dates: start: 20241129

REACTIONS (3)
  - Nephrolithiasis [Not Recovered/Not Resolved]
  - Arthralgia [Recovered/Resolved]
  - Inappropriate schedule of product administration [Unknown]

NARRATIVE: CASE EVENT DATE: 20240101
